FAERS Safety Report 12903214 (Version 3)
Quarter: 2016Q4

REPORT INFORMATION
  Report Type: Spontaneous
  Country: US (occurrence: US)
  Receive Date: 20161102
  Receipt Date: 20161128
  Transmission Date: 20170207
  Serious: No
  Sender: FDA-Public Use
  Company Number: GXBR2016US001220

PATIENT
  Sex: Female
  Weight: 63.95 kg

DRUGS (4)
  1. CARBAMAZEPINE. [Suspect]
     Active Substance: CARBAMAZEPINE
     Indication: BIPOLAR DISORDER
     Dosage: 1400 MG, QD
     Route: 048
     Dates: start: 1991
  2. PERPHENAZINE TABLETS USP [Suspect]
     Active Substance: PERPHENAZINE
     Dosage: 6 MG, QD
     Route: 048
  3. PERPHENAZINE TABLETS USP [Suspect]
     Active Substance: PERPHENAZINE
     Indication: BIPOLAR DISORDER
     Dosage: 2 MG, BID
     Route: 048
     Dates: start: 1991
  4. PERPHENAZINE TABLETS USP [Suspect]
     Active Substance: PERPHENAZINE
     Dosage: 10 MG, QD
     Route: 048

REACTIONS (4)
  - Facial spasm [Recovering/Resolving]
  - Insomnia [Recovering/Resolving]
  - Blepharospasm [Recovering/Resolving]
  - Facial pain [Recovering/Resolving]
